FAERS Safety Report 6527141-7 (Version None)
Quarter: 2010Q1

REPORT INFORMATION
  Report Type: 
  Country: None (occurrence: None)
  Receive Date: 20100105
  Receipt Date: 20100104
  Transmission Date: 20100710
  Serious: Yes (Other)
  Sender: FDA-Public Use
  Company Number: A0778483A

PATIENT
  Age: 91 Year
  Sex: Female

DRUGS (1)
  1. VERAMYST [Suspect]
     Indication: DRUG USE FOR UNKNOWN INDICATION
     Route: 045

REACTIONS (4)
  - COUGH [None]
  - EPISTAXIS [None]
  - HAEMORRHAGE [None]
  - THERAPEUTIC PROCEDURE [None]
